FAERS Safety Report 16109749 (Version 2)
Quarter: 2019Q3

REPORT INFORMATION
  Report Type: Report from Study
  Country: GB (occurrence: GB)
  Receive Date: 20190325
  Receipt Date: 20190726
  Transmission Date: 20191004
  Serious: No
  Sender: FDA-Public Use
  Company Number: GB-AUROBINDO-AUR-APL-2019-015330

PATIENT

DRUGS (2)
  1. TRAMADOL. [Suspect]
     Active Substance: TRAMADOL
     Indication: FIBROMATOSIS
  2. TRAMADOL. [Suspect]
     Active Substance: TRAMADOL
     Indication: DESMOID TUMOUR
     Dosage: UNK, FOR SEVEN YEARS
     Route: 065

REACTIONS (7)
  - Emotional distress [Unknown]
  - Constipation [Unknown]
  - Emotional disorder [Unknown]
  - Toxicity to various agents [Unknown]
  - Drug withdrawal syndrome [Unknown]
  - Depression [Unknown]
  - Depressed mood [Unknown]
